FAERS Safety Report 23107928 (Version 1)
Quarter: 2023Q4

REPORT INFORMATION
  Report Type: Spontaneous
  Country: US (occurrence: US)
  Receive Date: 20231026
  Receipt Date: 20231026
  Transmission Date: 20240109
  Serious: Yes (Life-Threatening, Hospitalization)
  Sender: FDA-Public Use
  Company Number: US-drreddys-LIT/USA/23/0180473

PATIENT
  Age: 52 Year
  Sex: Female

DRUGS (5)
  1. CYCLOPHOSPHAMIDE [Suspect]
     Active Substance: CYCLOPHOSPHAMIDE
     Indication: Pulmonary alveolar haemorrhage
  2. RITUXIMAB [Suspect]
     Active Substance: RITUXIMAB
     Indication: Pulmonary alveolar haemorrhage
  3. RUXOLITINIB [Suspect]
     Active Substance: RUXOLITINIB
     Indication: Pulmonary alveolar haemorrhage
  4. PRIVIGEN [Suspect]
     Active Substance: HUMAN IMMUNOGLOBULIN G
     Indication: Pulmonary alveolar haemorrhage
  5. PREDNISONE [Concomitant]
     Active Substance: PREDNISONE
     Indication: COVID-19

REACTIONS (1)
  - Drug ineffective for unapproved indication [Unknown]
